FAERS Safety Report 20868277 (Version 5)
Quarter: 2022Q4

REPORT INFORMATION
  Report Type: Report from Study
  Country: US (occurrence: US)
  Receive Date: 20220524
  Receipt Date: 20221006
  Transmission Date: 20230112
  Serious: Yes (Other)
  Sender: FDA-Public Use
  Company Number: US-TAKEDA-2022TUS011313

PATIENT
  Sex: Male

DRUGS (13)
  1. PONATINIB [Suspect]
     Active Substance: PONATINIB
     Indication: Plasmacytoma
     Dosage: 15 MILLIGRAM, QD
     Route: 048
     Dates: start: 20220217
  2. PONATINIB [Suspect]
     Active Substance: PONATINIB
     Indication: Lymphocytic leukaemia
  3. FLONASE [Suspect]
     Active Substance: FLUTICASONE PROPIONATE
     Indication: Product used for unknown indication
     Dosage: UNK
     Route: 065
  4. HYDROCORTISONE [Concomitant]
     Active Substance: HYDROCORTISONE
     Dosage: UNK
     Route: 065
  5. DEXAMETHASONE [Concomitant]
     Active Substance: DEXAMETHASONE
     Dosage: UNK
     Route: 065
  6. XLEAR SINUS CARE [Concomitant]
     Dosage: UNK
     Route: 065
  7. ZOFRAN [Concomitant]
     Active Substance: ONDANSETRON HYDROCHLORIDE
     Dosage: UNK
     Route: 065
  8. TRIAMCINOLONE [Concomitant]
     Active Substance: TRIAMCINOLONE
     Dosage: UNK
     Route: 065
  9. PEPSIN [Concomitant]
     Active Substance: PEPSIN
     Dosage: UNK
     Route: 065
  10. TRAMADOL HCL [Concomitant]
     Active Substance: TRAMADOL HYDROCHLORIDE
     Dosage: UNK
     Route: 065
  11. XYZAL ALLERGY 24HR [Concomitant]
     Active Substance: LEVOCETIRIZINE DIHYDROCHLORIDE
     Dosage: UNK
     Route: 065
  12. NASALCROM [Concomitant]
     Active Substance: CROMOLYN SODIUM
     Dosage: UNK
     Route: 065
  13. MIRALAX [Concomitant]
     Active Substance: POLYETHYLENE GLYCOL 3350
     Dosage: UNK
     Route: 065

REACTIONS (12)
  - Blindness [Unknown]
  - Graft versus host disease oral [Unknown]
  - Somnolence [Unknown]
  - Sinusitis [Unknown]
  - Abdominal distension [Unknown]
  - Fatigue [Unknown]
  - Weight increased [Unknown]
  - Headache [Unknown]
  - Nausea [Unknown]
  - Constipation [Unknown]
  - Product dose omission issue [Unknown]
  - Off label use [Unknown]
